FAERS Safety Report 9910836 (Version 1)
Quarter: 2014Q1

REPORT INFORMATION
  Report Type: Spontaneous
  Country: US (occurrence: US)
  Receive Date: 20140219
  Receipt Date: 20140219
  Transmission Date: 20141002
  Serious: Yes (Other)
  Sender: FDA-Public Use
  Company Number: US-TEVA-463192USA

PATIENT
  Age: 38 Year
  Sex: Female
  Weight: 57.66 kg

DRUGS (1)
  1. PARAGARD 380A [Suspect]
     Indication: CONTRACEPTION
     Route: 015
     Dates: start: 2009, end: 201308

REACTIONS (4)
  - Embedded device [Not Recovered/Not Resolved]
  - Ovarian cyst [Not Recovered/Not Resolved]
  - Device breakage [Not Recovered/Not Resolved]
  - Menorrhagia [Recovered/Resolved]
